FAERS Safety Report 13513884 (Version 1)
Quarter: 2017Q2

REPORT INFORMATION
  Report Type: Spontaneous
  Country: CN (occurrence: CN)
  Receive Date: 20170504
  Receipt Date: 20170504
  Transmission Date: 20170830
  Serious: Yes (Hospitalization)
  Sender: FDA-Public Use
  Company Number: CN-JNJFOC-20170422394

PATIENT
  Age: 11 Month
  Sex: Female

DRUGS (2)
  1. INFANTS MOTRIN [Suspect]
     Active Substance: IBUPROFEN
     Indication: PYREXIA
     Route: 048
     Dates: start: 20170419, end: 20170419
  2. INFANTS MOTRIN [Suspect]
     Active Substance: IBUPROFEN
     Route: 048

REACTIONS (5)
  - Hyperhidrosis [Recovered/Resolved]
  - Accidental overdose [Recovered/Resolved]
  - Product label issue [Unknown]
  - Body temperature decreased [Recovered/Resolved]
  - Product label confusion [None]

NARRATIVE: CASE EVENT DATE: 20170419
